FAERS Safety Report 4459843-0 (Version None)
Quarter: 2004Q3

REPORT INFORMATION
  Report Type: 
  Country: None (occurrence: None)
  Receive Date: 20040928
  Receipt Date: 20031114
  Transmission Date: 20050211
  Serious: No
  Sender: FDA-Public Use
  Company Number: US-BRISTOL-MYERS SQUIBB COMPANY-12436622

PATIENT

DRUGS (1)
  1. AMOXICILLIN [Suspect]

REACTIONS (1)
  - MEDICATION ERROR [None]
